FAERS Safety Report 4415768-8 (Version None)
Quarter: 2004Q2

REPORT INFORMATION
  Report Type: 
  Country: None (occurrence: None)
  Receive Date: 20040628
  Receipt Date: 20040429
  Transmission Date: 20050107
  Serious: Yes (Hospitalization)
  Sender: FDA-Public Use
  Company Number: 366269

PATIENT
  Age: 10 Year
  Sex: Male

DRUGS (5)
  1. CELLCEPT [Suspect]
     Indication: SYSTEMIC LUPUS ERYTHEMATOSUS
  2. CELLCEPT [Suspect]
     Indication: UNEVALUABLE EVENT
  3. STEROIDS (STEROIDS) [Suspect]
     Indication: SYSTEMIC LUPUS ERYTHEMATOSUS
  4. STEROIDS (STEROIDS) [Suspect]
     Indication: UNEVALUABLE EVENT
  5. CYTOXAN [Concomitant]

REACTIONS (6)
  - DIARRHOEA [None]
  - GASTROINTESTINAL HAEMORRHAGE [None]
  - JEJUNAL PERFORATION [None]
  - PANCREATITIS [None]
  - PANCYTOPENIA [None]
  - VASCULITIS [None]
